FAERS Safety Report 13390875 (Version 1)
Quarter: 2017Q1

REPORT INFORMATION
  Report Type: Spontaneous
  Country: US (occurrence: US)
  Receive Date: 20170331
  Receipt Date: 20170331
  Transmission Date: 20170429
  Serious: No
  Sender: FDA-Public Use
  Company Number: US-BAYER-2017-061604

PATIENT

DRUGS (1)
  1. CLARITIN [Suspect]
     Active Substance: LORATADINE
     Dosage: UNK; CONSUMER USING THE CLARITY FOR ABOUT A WEEK NOW

REACTIONS (2)
  - Drug effect incomplete [None]
  - Therapeutic response unexpected [None]
